FAERS Safety Report 16904492 (Version 1)
Quarter: 2019Q4

REPORT INFORMATION
  Report Type: Spontaneous
  Country: US (occurrence: US)
  Receive Date: 20190819
  Receipt Date: 20190819
  Transmission Date: 20200122
  Serious: No
  Sender: FDA-Public Use
  Company Number: None

PATIENT

DRUGS (3)
  1. DESYREL [Suspect]
     Active Substance: TRAZODONE HYDROCHLORIDE
  2. PROZAC [Suspect]
     Active Substance: FLUOXETINE HYDROCHLORIDE
  3. TRILEPTAL [Suspect]
     Active Substance: OXCARBAZEPINE

REACTIONS (2)
  - Stevens-Johnson syndrome [None]
  - Drug interaction [None]
